FAERS Safety Report 5496701-7 (Version None)
Quarter: 2007Q4

REPORT INFORMATION
  Report Type: 
  Country: None (occurrence: None)
  Receive Date: 20071025
  Receipt Date: 20070703
  Transmission Date: 20080405
  Serious: No
  Sender: FDA-Public Use
  Company Number: A0661949A

PATIENT
  Age: 77 Year
  Sex: Female

DRUGS (3)
  1. ADVAIR DISKUS 100/50 [Suspect]
     Indication: EMPHYSEMA
     Dosage: 1PUFF TWICE PER DAY
     Route: 055
     Dates: start: 20070601
  2. PRILOSEC [Concomitant]
  3. ASPIRIN [Concomitant]

REACTIONS (2)
  - BURNING SENSATION [None]
  - GLOSSODYNIA [None]
